FAERS Safety Report 23577475 (Version 1)
Quarter: 2024Q1

REPORT INFORMATION
  Report Type: Spontaneous
  Country: FR (occurrence: FR)
  Receive Date: 20240228
  Receipt Date: 20240228
  Transmission Date: 20240410
  Serious: Yes (Hospitalization)
  Sender: FDA-Public Use
  Company Number: FR-ORGANON-O2402FRA001809

PATIENT
  Age: 67 Year
  Sex: Female

DRUGS (1)
  1. BETAMETHASONE DIPROPIONATE\BETAMETHASONE SODIUM PHOSPHATE [Suspect]
     Active Substance: BETAMETHASONE DIPROPIONATE\BETAMETHASONE SODIUM PHOSPHATE
     Indication: Carpal tunnel syndrome
     Dosage: UNK
     Route: 042
     Dates: start: 20240202

REACTIONS (8)
  - Pain [Unknown]
  - Vomiting [Unknown]
  - Blood pressure increased [Unknown]
  - Tachycardia [Unknown]
  - Vein rupture [Unknown]
  - Injection site extravasation [Unknown]
  - Incorrect route of product administration [Unknown]
  - Product use in unapproved indication [Unknown]

NARRATIVE: CASE EVENT DATE: 20240202
